FAERS Safety Report 9882616 (Version 1)
Quarter: 2014Q1

REPORT INFORMATION
  Report Type: Spontaneous
  Country: ES (occurrence: ES)
  Receive Date: 20140207
  Receipt Date: 20140207
  Transmission Date: 20141002
  Serious: Yes (Other)
  Sender: FDA-Public Use
  Company Number: ES-ELI_LILLY_AND_COMPANY-ES201401009373

PATIENT
  Age: 28 Year
  Sex: Male

DRUGS (3)
  1. ZYPADHERA [Suspect]
     Indication: PRODUCT USED FOR UNKNOWN INDICATION
     Dosage: UNK UNK, MONTHLY (1/M)
     Route: 030
     Dates: start: 20131203
  2. DEPAKINE                           /00228502/ [Concomitant]
     Indication: BORDERLINE PERSONALITY DISORDER
     Dosage: UNK UNK, QD
     Route: 065
     Dates: start: 20131118
  3. RIVATRIL [Concomitant]
     Indication: BORDERLINE PERSONALITY DISORDER
     Dosage: 2 MG, QD
     Route: 065
     Dates: start: 20131118

REACTIONS (3)
  - Oxygen saturation decreased [Unknown]
  - Dizziness [Unknown]
  - Blood pressure diastolic decreased [Unknown]
